FAERS Safety Report 19905291 (Version 1)
Quarter: 2021Q3

REPORT INFORMATION
  Report Type: Spontaneous
  Country: CA (occurrence: CA)
  Receive Date: 20210930
  Receipt Date: 20210930
  Transmission Date: 20211014
  Serious: Yes (Other)
  Sender: FDA-Public Use
  Company Number: CA-TEVA-2021-CA-1958157

PATIENT
  Age: 87 Year
  Sex: Female

DRUGS (1)
  1. CEFALEXIN [Suspect]
     Active Substance: CEPHALEXIN
     Indication: LOCALISED INFECTION
     Route: 048

REACTIONS (5)
  - Hemiparesis [Unknown]
  - Pruritus [Unknown]
  - Cerebrovascular accident [Unknown]
  - Dysarthria [Unknown]
  - Rash [Unknown]
